FAERS Safety Report 5770428-6 (Version None)
Quarter: 2008Q2

REPORT INFORMATION
  Report Type: 
  Country: None (occurrence: None)
  Receive Date: 20080613
  Receipt Date: 20080505
  Transmission Date: 20081010
  Serious: No
  Sender: FDA-Public Use
  Company Number: US-ABBOTT-08P-163-0450306-00

PATIENT
  Sex: Female
  Weight: 74.91 kg

DRUGS (15)
  1. HUMIRA [Suspect]
     Indication: RHEUMATOID ARTHRITIS
     Route: 058
     Dates: start: 20031201, end: 20060801
  2. HUMIRA [Suspect]
     Indication: ANKYLOSING SPONDYLITIS
     Dates: start: 20060801
  3. CHLORAL HYDRATE [Concomitant]
     Indication: INSOMNIA
     Route: 048
  4. MACROGOL [Concomitant]
     Indication: CONSTIPATION
     Route: 048
  5. BUDESONIDE [Concomitant]
     Indication: COLITIS
     Route: 048
  6. LAMOTRIGINE [Concomitant]
     Indication: BIPOLAR DISORDER
     Route: 048
  7. REQUA [Concomitant]
     Indication: INSOMNIA
     Dosage: AT BEDTIME
     Route: 048
  8. TOPIRAMATE [Concomitant]
     Indication: BIPOLAR DISORDER
     Dosage: DAILY
     Route: 048
  9. PROVELLA-14 [Concomitant]
     Indication: HORMONE REPLACEMENT THERAPY
     Dosage: DAILY
     Route: 048
  10. CLONAZEPAM [Concomitant]
     Indication: ANXIETY
     Dosage: DAILY
     Route: 048
  11. PROPACET 100 [Concomitant]
     Indication: PAIN
     Dosage: AS REQUIRED
     Route: 048
  12. ATENOLOL [Concomitant]
     Indication: HYPERTENSION
     Dosage: ONE DAILY
     Route: 048
  13. CANDESARTAN CILEXETIL [Concomitant]
     Indication: HYPERTENSION
     Dosage: DAILY
     Route: 048
  14. BUPROPION HYDROCHLORIDE [Concomitant]
     Indication: BIPOLAR DISORDER
     Dosage: DAILY
     Route: 048
  15. IMODIUM [Concomitant]
     Indication: DIARRHOEA
     Dosage: AS REQUIRED
     Route: 048

REACTIONS (4)
  - INJECTION SITE BRUISING [None]
  - OPEN WOUND [None]
  - RASH ERYTHEMATOUS [None]
  - SKIN ATROPHY [None]
